FAERS Safety Report 5805084-1 (Version None)
Quarter: 2008Q3

REPORT INFORMATION
  Report Type: 
  Country: None (occurrence: None)
  Receive Date: 20080709
  Receipt Date: 20080627
  Transmission Date: 20090109
  Serious: Yes (Hospitalization)
  Sender: FDA-Public Use
  Company Number: JP-ELI_LILLY_AND_COMPANY-JP200805001735

PATIENT
  Sex: Male
  Weight: 57.3 kg

DRUGS (16)
  1. ZYPREXA [Suspect]
     Indication: SCHIZOAFFECTIVE DISORDER
     Dosage: 10 MG, DAILY (1/D)
     Route: 048
     Dates: start: 20071101
  2. ZYPREXA [Suspect]
     Dosage: 20 MG, DAILY (1/D)
     Route: 048
     Dates: start: 20080423, end: 20080424
  3. ZYPREXA [Suspect]
     Dosage: 30 MG, DAILY (1/D)
     Route: 048
     Dates: start: 20080425, end: 20080427
  4. ZYPREXA [Suspect]
     Dosage: 5 MG, DAILY (1/D)
     Route: 048
     Dates: start: 20080521, end: 20080522
  5. ZYPREXA [Suspect]
     Dosage: 10 MG, DAILY (1/D)
     Route: 048
     Dates: start: 20080523, end: 20080525
  6. ZYPREXA [Suspect]
     Dosage: 15 MG, DAILY (1/D)
     Route: 048
     Dates: start: 20080526, end: 20080605
  7. ZYPREXA [Suspect]
     Dosage: 20 MG, DAILY (1/D)
     Route: 048
     Dates: start: 20080606
  8. ZYPREXA [Suspect]
     Dosage: 30 MG, DAILY (1/D)
     Route: 048
     Dates: start: 20080428, end: 20080430
  9. RISPERDAL [Concomitant]
     Indication: SCHIZOAFFECTIVE DISORDER
     Dosage: 6 MG, 3/D
     Route: 048
     Dates: end: 20080430
  10. SILECE [Concomitant]
     Indication: SCHIZOAFFECTIVE DISORDER
     Dosage: 2 MG, DAILY (1/D)
     Route: 048
     Dates: end: 20080425
  11. SILECE [Concomitant]
     Dosage: 4 MG, DAILY (1/D)
     Route: 048
     Dates: start: 20080426, end: 20080430
  12. SILECE [Concomitant]
     Dosage: 4 MG, DAILY (1/D)
     Route: 048
     Dates: start: 20080503
  13. LODOPIN [Concomitant]
     Indication: SCHIZOAFFECTIVE DISORDER
     Dosage: 25 MG, 3/D
     Route: 048
     Dates: start: 20080423, end: 20080428
  14. HIRNAMIN [Concomitant]
     Indication: SCHIZOAFFECTIVE DISORDER
     Dosage: 25 MG, 4/D
     Route: 030
     Dates: start: 20080428, end: 20080430
  15. SERENACE [Concomitant]
     Indication: SCHIZOAFFECTIVE DISORDER
     Dosage: 5 MG, 4/D
     Route: 042
     Dates: start: 20080428, end: 20080430
  16. DEPAKENE [Concomitant]
     Indication: SCHIZOAFFECTIVE DISORDER
     Dosage: 200 MG, 3/D
     Route: 048
     Dates: start: 20080429, end: 20080430

REACTIONS (5)
  - HEPATIC FUNCTION ABNORMAL [None]
  - HOSPITALISATION [None]
  - NEUROLEPTIC MALIGNANT SYNDROME [None]
  - OVERDOSE [None]
  - PSYCHIATRIC SYMPTOM [None]
